FAERS Safety Report 8598121-5 (Version None)
Quarter: 2012Q3

REPORT INFORMATION
  Report Type: 
  Country: None (occurrence: None)
  Receive Date: 20120816
  Receipt Date: 20120807
  Transmission Date: 20120928
  Serious: Yes (Hospitalization)
  Sender: FDA-Public Use
  Company Number: NL-ASTRAZENECA-2012SE55813

PATIENT
  Age: 23978 Day
  Sex: Female
  Weight: 60 kg

DRUGS (4)
  1. LIPITOR OMHULD [Concomitant]
     Route: 048
     Dates: start: 20050101
  2. OMEPRAZOLE MAGNESIUM [Suspect]
     Indication: DYSPEPSIA
     Route: 048
     Dates: start: 20070101, end: 20120730
  3. AMLODIPINE (BESILAAT) [Concomitant]
     Route: 048
     Dates: start: 20050101
  4. LABETALOL HCL [Concomitant]
     Route: 048
     Dates: start: 20050101

REACTIONS (2)
  - HYPOMAGNESAEMIA [None]
  - HYPOCALCAEMIA [None]
